FAERS Safety Report 19210296 (Version 3)
Quarter: 2021Q4

REPORT INFORMATION
  Report Type: Report from Study
  Country: None (occurrence: CA)
  Receive Date: 20210504
  Receipt Date: 20211013
  Transmission Date: 20220303
  Serious: Yes (Other)
  Sender: FDA-Public Use
  Company Number: CA-ABBVIE-21K-028-3888564-00

PATIENT
  Age: 30 Year
  Sex: Male
  Weight: 79 kg

DRUGS (1)
  1. SKYRIZI [Suspect]
     Active Substance: RISANKIZUMAB-RZAA
     Indication: Psoriasis
     Route: 058
     Dates: start: 20200511, end: 20210510

REACTIONS (7)
  - Nose deformity [Recovered/Resolved]
  - Nasal turbinate hypertrophy [Recovered/Resolved]
  - Post procedural haemorrhage [Recovered/Resolved]
  - Erythema [Recovered/Resolved]
  - Arthralgia [Unknown]
  - Injection site reaction [Recovered/Resolved]
  - Nail psoriasis [Unknown]

NARRATIVE: CASE EVENT DATE: 20210215
